FAERS Safety Report 17704650 (Version 1)
Quarter: 2020Q2

REPORT INFORMATION
  Report Type: Spontaneous
  Country: US (occurrence: US)
  Receive Date: 20200424
  Receipt Date: 20200424
  Transmission Date: 20200714
  Serious: Yes (Disabling)
  Sender: FDA-Public Use
  Company Number: None

PATIENT
  Age: 46 Year
  Sex: Female
  Weight: 78.75 kg

DRUGS (6)
  1. VITAMIN D [Concomitant]
     Active Substance: VITAMIN D NOS
  2. LACINAPRIL [Concomitant]
  3. ATORVASATIN [Concomitant]
  4. LORSXAPAM [Concomitant]
  5. INVEGA SUSTENNA [Suspect]
     Active Substance: PALIPERIDONE PALMITATE
     Indication: MENTAL DISORDER
     Dosage: ?          OTHER FREQUENCY:INJECTION MONTHLY;?
     Route: 030
     Dates: start: 20191201, end: 20200415
  6. GABAPENTIN. [Concomitant]
     Active Substance: GABAPENTIN

REACTIONS (6)
  - Gait disturbance [None]
  - Visual impairment [None]
  - Hypersomnia [None]
  - Tremor [None]
  - Head discomfort [None]
  - Anger [None]

NARRATIVE: CASE EVENT DATE: 20200419
